FAERS Safety Report 9723564 (Version 1)
Quarter: 2013Q4

REPORT INFORMATION
  Report Type: Spontaneous
  Country: NO (occurrence: NO)
  Receive Date: 20131202
  Receipt Date: 20131202
  Transmission Date: 20140711
  Serious: Yes (Death, Other)
  Sender: FDA-Public Use
  Company Number: NO-BAYER-2013-141473

PATIENT
  Age: 76 Year
  Sex: Female

DRUGS (8)
  1. CIPROFLOXACIN [Suspect]
     Indication: PNEUMONIA
     Dosage: UNK
     Route: 042
     Dates: start: 201310
  2. BENZYLPENICILLINE [Interacting]
     Indication: PNEUMONIA
     Dosage: UNK
     Route: 042
     Dates: start: 201310
  3. MAREVAN [Interacting]
     Indication: AORTIC VALVE REPLACEMENT
  4. MAREVAN [Interacting]
     Indication: AORTIC VALVE REPLACEMENT
     Route: 048
  5. PANTOPRAZOLE [Concomitant]
     Dosage: 40 MG, QD
     Route: 048
  6. RIVOTRIL [Concomitant]
     Indication: EPILEPSY
     Dosage: .5 MG, QD
     Route: 047
  7. ORFIRIL [VALPROATE SODIUM] [Concomitant]
     Indication: EPILEPSY
     Dosage: 600 MG, BID
     Route: 048
  8. BURINEX [Concomitant]
     Dosage: 1 MG, QD
     Route: 048

REACTIONS (3)
  - Drug interaction [Not Recovered/Not Resolved]
  - Cerebral haemorrhage [Fatal]
  - International normalised ratio increased [Not Recovered/Not Resolved]
